FAERS Safety Report 11258086 (Version 1)
Quarter: 2015Q3

REPORT INFORMATION
  Report Type: Spontaneous
  Country: US (occurrence: None)
  Receive Date: 20150708
  Receipt Date: 20150708
  Transmission Date: 20151125
  Serious: Yes (Life-Threatening, Hospitalization, Other)
  Sender: FDA-Public Use
  Company Number: 2015HINLIT0533

PATIENT
  Age: 24 Year
  Sex: Female

DRUGS (2)
  1. LEVETIRACTAM [Suspect]
     Active Substance: LEVETIRACETAM
     Indication: SEIZURE
     Dosage: INCREASING OVER THE WEEKS
  2. CARBAMAZEPINE. [Concomitant]
     Active Substance: CARBAMAZEPINE

REACTIONS (6)
  - Electrocardiogram QT prolonged [None]
  - Anticonvulsant drug level [None]
  - Torsade de pointes [None]
  - Dyspnoea [None]
  - Ventricular tachycardia [None]
  - Mental status changes [None]
